FAERS Safety Report 11874230 (Version 2)
Quarter: 2016Q1

REPORT INFORMATION
  Report Type: Report from Study
  Country: US (occurrence: US)
  Receive Date: 20151229
  Receipt Date: 20160222
  Transmission Date: 20160526
  Serious: No
  Sender: FDA-Public Use
  Company Number: US-AMGEN-USASL2015136227

PATIENT
  Age: 34 Year
  Sex: Female
  Weight: 77.98 kg

DRUGS (1)
  1. ENBREL [Suspect]
     Active Substance: ETANERCEPT
     Indication: RHEUMATOID ARTHRITIS
     Dosage: 50 MG, QWK
     Route: 058
     Dates: start: 20151116, end: 20151214

REACTIONS (7)
  - Injection site reaction [Recovered/Resolved]
  - Drug hypersensitivity [Unknown]
  - Urticaria [Unknown]
  - Injection site discolouration [Recovering/Resolving]
  - Injection site erythema [Recovered/Resolved]
  - Injection site warmth [Recovered/Resolved]
  - Memory impairment [Unknown]
